FAERS Safety Report 5395063-3 (Version None)
Quarter: 2007Q3

REPORT INFORMATION
  Report Type: 
  Country: None (occurrence: None)
  Receive Date: 20070718
  Receipt Date: 20070307
  Transmission Date: 20080115
  Serious: Yes (Hospitalization, Other)
  Sender: FDA-Public Use
  Company Number: 2006120225

PATIENT
  Sex: Male

DRUGS (2)
  1. CELEBREX [Suspect]
     Indication: ARTHRITIS
     Dosage: 400 MG (200 MG, 2 IN 1 D), ORAL
     Route: 048
     Dates: start: 20010111, end: 20010206
  2. VIOXX [Suspect]
     Dosage: ORAL
     Route: 048
     Dates: start: 20000801

REACTIONS (1)
  - CEREBROVASCULAR ACCIDENT [None]
